FAERS Safety Report 12291156 (Version 1)
Quarter: 2016Q2

REPORT INFORMATION
  Report Type: Report from Study
  Country: BR (occurrence: BR)
  Receive Date: 20160421
  Receipt Date: 20160421
  Transmission Date: 20160815
  Serious: Yes (Other)
  Sender: FDA-Public Use
  Company Number: BR-JNJFOC-20160418152

PATIENT
  Sex: Male

DRUGS (1)
  1. REMICADE [Suspect]
     Active Substance: INFLIXIMAB
     Indication: PSORIASIS
     Route: 042
     Dates: start: 2010, end: 2012

REACTIONS (5)
  - Heart rate increased [Recovered/Resolved]
  - Product use issue [Unknown]
  - Off label use [Unknown]
  - Blood pressure fluctuation [Recovered/Resolved]
  - Infusion related reaction [Recovered/Resolved]
